FAERS Safety Report 14931247 (Version 1)
Quarter: 2018Q2

REPORT INFORMATION
  Report Type: Spontaneous
  Country: US (occurrence: US)
  Receive Date: 20180524
  Receipt Date: 20180524
  Transmission Date: 20180711
  Serious: No
  Sender: FDA-Public Use
  Company Number: US-UNITED THERAPEUTICS-UNT-2018-007221

PATIENT
  Sex: Female

DRUGS (1)
  1. REMODULIN [Suspect]
     Active Substance: TREPROSTINIL
     Indication: PULMONARY ARTERIAL HYPERTENSION
     Dosage: 0.017 ?G/KG, CONTINUING
     Route: 041
     Dates: start: 20180314

REACTIONS (3)
  - Infusion site pain [Unknown]
  - Infusion site erythema [Unknown]
  - Infusion site pruritus [Not Recovered/Not Resolved]
